FAERS Safety Report 9380945 (Version 3)
Quarter: 2013Q3

REPORT INFORMATION
  Report Type: Spontaneous
  Country: US (occurrence: US)
  Receive Date: 20130703
  Receipt Date: 20130723
  Transmission Date: 20140515
  Serious: Yes (Death, Life-Threatening, Hospitalization, Other)
  Sender: FDA-Public Use
  Company Number: US-MERCK-1307USA000997

PATIENT
  Age: 78 Year
  Sex: Male
  Weight: 83.9 kg

DRUGS (4)
  1. JANUVIA [Suspect]
     Indication: DIABETES MELLITUS
     Dosage: 100 MG, QD
     Route: 048
     Dates: start: 20070118, end: 20080124
  2. JANUVIA [Suspect]
     Indication: TYPE 2 DIABETES MELLITUS
  3. JANUVIA [Suspect]
     Indication: DIABETES MELLITUS
     Dosage: 50 MG, QD
     Route: 048
     Dates: start: 20080125, end: 20100517
  4. JANUVIA [Suspect]
     Indication: TYPE 2 DIABETES MELLITUS

REACTIONS (2)
  - Pancreatic carcinoma [Fatal]
  - Pancreaticoduodenectomy [Unknown]
